FAERS Safety Report 16711224 (Version 1)
Quarter: 2019Q4

REPORT INFORMATION
  Report Type: Spontaneous
  Country: US (occurrence: US)
  Receive Date: 20190816
  Receipt Date: 20190816
  Transmission Date: 20200122
  Serious: No
  Sender: FDA-Public Use
  Company Number: None

PATIENT
  Age: 74 Year
  Sex: Male
  Weight: 94.5 kg

DRUGS (4)
  1. DESLORATADINE. [Suspect]
     Active Substance: DESLORATADINE
     Indication: URTICARIA
     Dosage: ?          QUANTITY:1 TABLET(S);?
     Route: 048
     Dates: start: 20190810, end: 20190813
  2. DESLORATADINE. [Suspect]
     Active Substance: DESLORATADINE
     Indication: DERMATITIS ALLERGIC
     Dosage: ?          QUANTITY:1 TABLET(S);?
     Route: 048
     Dates: start: 20190810, end: 20190813
  3. PROVENTIL [Concomitant]
     Active Substance: ALBUTEROL
  4. TRIAMCINOLONE [Concomitant]
     Active Substance: TRIAMCINOLONE

REACTIONS (7)
  - Product substitution issue [None]
  - Treatment failure [None]
  - Feeling hot [None]
  - Urticaria [None]
  - Headache [None]
  - Flushing [None]
  - Muscle spasms [None]

NARRATIVE: CASE EVENT DATE: 20190812
